FAERS Safety Report 4570535-X (Version None)
Quarter: 2005Q1

REPORT INFORMATION
  Report Type: 
  Country: None (occurrence: None)
  Receive Date: 20050202
  Receipt Date: 20050117
  Transmission Date: 20050727
  Serious: Yes (Other)
  Sender: FDA-Public Use
  Company Number: CA-2005-000694

PATIENT
  Age: 78 Year
  Sex: Female

DRUGS (8)
  1. BETASERON [Suspect]
     Indication: RELAPSING-REMITTING MULTIPLE SCLEROSIS
     Dosage: 8 MIU, EVERY 2D, SUBCUTANEOUS
     Route: 058
     Dates: start: 20001019, end: 20040816
  2. AMANTADINE (AMANTADINE) [Concomitant]
  3. BACLOFEN [Concomitant]
  4. CELEXA [Concomitant]
  5. NORTRIPTYLINE HCL [Concomitant]
  6. LOSEC /CAN/(OMPERPAZOLE MAGNESIUM) [Concomitant]
  7. CELEBREX 9CELECOXIB0 [Concomitant]
  8. BOTOX (BOTULINUM TOXIN TYPE A) [Concomitant]

REACTIONS (8)
  - ANGINA PECTORIS [None]
  - ARTHRITIS [None]
  - ASTHMA [None]
  - CEREBROVASCULAR ACCIDENT [None]
  - CONSTIPATION [None]
  - HEADACHE [None]
  - MENIERE'S DISEASE [None]
  - MULTIPLE SCLEROSIS [None]
